FAERS Safety Report 10248786 (Version 1)
Quarter: 2014Q2

REPORT INFORMATION
  Report Type: Spontaneous
  Country: US (occurrence: None)
  Receive Date: 20140618
  Receipt Date: 20140618
  Transmission Date: 20141212
  Serious: No
  Sender: FDA-Public Use
  Company Number: None

PATIENT
  Age: 12 Year
  Sex: Female

DRUGS (1)
  1. GENERIC CONCERTA [Suspect]
     Dosage: 54 MG AM BY MOUTH
     Route: 048
     Dates: start: 20140616, end: 20140617

REACTIONS (2)
  - Drug intolerance [None]
  - Product substitution issue [None]
